FAERS Safety Report 5135293-9 (Version None)
Quarter: 2006Q4

REPORT INFORMATION
  Report Type: 
  Country: None (occurrence: None)
  Receive Date: 20061026
  Receipt Date: 20060808
  Transmission Date: 20070319
  Serious: Yes (Other)
  Sender: FDA-Public Use
  Company Number: PHBS2006JP12069

PATIENT
  Age: 73 Year
  Sex: Female
  Weight: 55 kg

DRUGS (5)
  1. ZOMETA [Suspect]
     Indication: METASTASES TO BONE
     Dosage: 4 MG, QMO
     Route: 041
     Dates: start: 20060516, end: 20060613
  2. AREDIA [Suspect]
     Indication: METASTASES TO BONE
     Dosage: 90 MG, 4 WEEKS
     Route: 042
     Dates: start: 20050609, end: 20060101
  3. AREDIA [Suspect]
     Dosage: 90 MG, EVERY 4 WEEKS
     Route: 042
     Dates: start: 20060711
  4. XELODA [Concomitant]
     Route: 065
     Dates: start: 20041101, end: 20051101
  5. TS 1 [Concomitant]
     Indication: METASTASES TO BONE
     Dosage: 100 MG/D
     Route: 048
     Dates: start: 20051207

REACTIONS (11)
  - ABDOMINAL PAIN UPPER [None]
  - BACK PAIN [None]
  - BONE PAIN [None]
  - DUODENAL ULCER [None]
  - FEELING ABNORMAL [None]
  - GASTRIC ULCER [None]
  - GASTROINTESTINAL ULCER [None]
  - HIATUS HERNIA [None]
  - PEPTIC ULCER [None]
  - REFLUX OESOPHAGITIS [None]
  - SOMNOLENCE [None]
